FAERS Safety Report 9474088 (Version 1)
Quarter: 2013Q3

REPORT INFORMATION
  Report Type: Spontaneous
  Country: US (occurrence: None)
  Receive Date: 20130820
  Receipt Date: 20130820
  Transmission Date: 20140515
  Serious: Yes (Other)
  Sender: FDA-Public Use
  Company Number: ACO_37904_2013

PATIENT
  Sex: Female

DRUGS (3)
  1. AMPYRA (DALFAMPRIDINE) TABLET, 10MG [Suspect]
     Indication: MULTIPLE SCLEROSIS
     Route: 048
     Dates: start: 20130716, end: 2013
  2. AMANTADINE [Suspect]
     Indication: MULTIPLE SCLEROSIS
     Dates: start: 20130711
  3. AMANTADINE [Suspect]
     Indication: FATIGUE
     Dates: start: 20130711

REACTIONS (4)
  - Confusional state [None]
  - Disorientation [None]
  - Adverse event [None]
  - Feeling abnormal [None]
